FAERS Safety Report 8491662-0 (Version None)
Quarter: 2012Q3

REPORT INFORMATION
  Report Type: 
  Country: None (occurrence: None)
  Receive Date: 20120706
  Receipt Date: 20120628
  Transmission Date: 20120928
  Serious: Yes (Life-Threatening)
  Sender: FDA-Public Use
  Company Number: LV-BRISTOL-MYERS SQUIBB COMPANY-16722183

PATIENT
  Age: 58 Year
  Sex: Male
  Weight: 96 kg

DRUGS (4)
  1. DOXORUBICIN HCL [Concomitant]
  2. IFOSFAMIDE [Concomitant]
  3. ETOPOSIDE [Concomitant]
  4. BICNU [Suspect]
     Route: 042
     Dates: start: 20120619, end: 20120619

REACTIONS (4)
  - THROAT IRRITATION [None]
  - ERYTHEMA [None]
  - DYSPNOEA [None]
  - BLOOD PRESSURE INCREASED [None]
